FAERS Safety Report 5763762-7 (Version None)
Quarter: 2008Q2

REPORT INFORMATION
  Report Type: 
  Country: None (occurrence: None)
  Receive Date: 20080606
  Receipt Date: 20080606
  Transmission Date: 20081010
  Serious: Yes (Other)
  Sender: FDA-Public Use
  Company Number: None

PATIENT
  Sex: Female
  Weight: 31.7518 kg

DRUGS (2)
  1. AMITIZA [Suspect]
     Indication: CONSTIPATION
     Dosage: 1 1 AM MOUTH
     Route: 048
     Dates: start: 20080331
  2. AMITIZA [Suspect]
     Indication: CONSTIPATION
     Dosage: 1 1 AM MOUTH
     Route: 048
     Dates: start: 20080401

REACTIONS (6)
  - AMNESIA [None]
  - CONTUSION [None]
  - FALL [None]
  - HAEMORRHAGE [None]
  - LOSS OF CONSCIOUSNESS [None]
  - SYNCOPE [None]
